FAERS Safety Report 8837944 (Version 2)
Quarter: 2012Q4

REPORT INFORMATION
  Report Type: 
  Country: US (occurrence: US)
  Receive Date: 20121012
  Receipt Date: 20121022
  Transmission Date: 20130627
  Serious: Yes (Death, Hospitalization)
  Sender: FDA-Public Use
  Company Number: US-ROCHE-1109832

PATIENT
  Sex: Female

DRUGS (2)
  1. NUTROPIN [Suspect]
     Indication: HYPOPITUITARISM
     Route: 065
     Dates: start: 20090115, end: 20090204
  2. NUTROPIN [Suspect]
     Indication: HYPOGLYCAEMIA NEONATAL

REACTIONS (3)
  - Cardiac disorder [Fatal]
  - Malaise [Unknown]
  - Hypoglycaemia [Recovered/Resolved]
